FAERS Safety Report 4663232-3 (Version None)
Quarter: 2005Q2

REPORT INFORMATION
  Report Type: 
  Country: None (occurrence: None)
  Receive Date: 20050512
  Receipt Date: 20050503
  Transmission Date: 20051028
  Serious: Yes (Death, Hospitalization)
  Sender: FDA-Public Use
  Company Number: GXKR2005BR00999

PATIENT
  Age: 57 Year
  Sex: Female

DRUGS (2)
  1. AMOXICILLIN + CLAVULANATE POTASSIUM (NGX) (AMOXICILLIN, CLAVULANATE) F [Suspect]
     Indication: PLEURAL DISORDER
     Dosage: 3 TABLETS, ORAL
     Route: 048
     Dates: start: 20050101
  2. INSULIN [Concomitant]

REACTIONS (1)
  - RENAL DISORDER [None]
